FAERS Safety Report 13565917 (Version 5)
Quarter: 2017Q4

REPORT INFORMATION
  Report Type: Spontaneous
  Country: US (occurrence: US)
  Receive Date: 20170520
  Receipt Date: 20171103
  Transmission Date: 20180320
  Serious: Yes (Hospitalization, Other)
  Sender: FDA-Public Use
  Company Number: US-TEVA-762645ACC

PATIENT
  Age: 59 Year
  Sex: Female

DRUGS (20)
  1. COPAXONE [Suspect]
     Active Substance: GLATIRAMER ACETATE
     Route: 058
     Dates: start: 20130222
  2. VITAMIN D [Concomitant]
     Active Substance: CHOLECALCIFEROL
  3. IBUPROFEN. [Concomitant]
     Active Substance: IBUPROFEN
  4. ALPRAZOLAM. [Concomitant]
     Active Substance: ALPRAZOLAM
  5. TIMOPTIC [Concomitant]
     Active Substance: TIMOLOL MALEATE
  6. DEXTROAMPHETAMINE ER [Concomitant]
  7. ALPRAZOLAM. [Concomitant]
     Active Substance: ALPRAZOLAM
  8. XANAX [Concomitant]
     Active Substance: ALPRAZOLAM
  9. LAMOTRIGINE EXTENDED RELEASE [Concomitant]
     Active Substance: LAMOTRIGINE
  10. DEXTROAMPHETAMINE ER [Concomitant]
  11. ESZOPICLONE. [Concomitant]
     Active Substance: ESZOPICLONE
  12. COPAXONE [Suspect]
     Active Substance: GLATIRAMER ACETATE
     Indication: MULTIPLE SCLEROSIS
     Route: 058
     Dates: start: 20140808
  13. LAMICTAL [Concomitant]
     Active Substance: LAMOTRIGINE
  14. LAMOTRIGINE EXTENDED RELEASE [Concomitant]
     Active Substance: LAMOTRIGINE
  15. ZINC. [Concomitant]
     Active Substance: ZINC
  16. PREDNISONE. [Concomitant]
     Active Substance: PREDNISONE
     Dosage: 5MG/ML
  17. DEXTROAMPHETAMINE ER [Concomitant]
  18. AMBIEN [Concomitant]
     Active Substance: ZOLPIDEM TARTRATE
  19. DEXTROAMPHETAMINE ER [Concomitant]
  20. TIMOLOL MAL [Concomitant]

REACTIONS (10)
  - Fatigue [Not Recovered/Not Resolved]
  - Eye operation [Not Recovered/Not Resolved]
  - Muscle spasms [Not Recovered/Not Resolved]
  - Hypoaesthesia [Not Recovered/Not Resolved]
  - Bladder disorder [Not Recovered/Not Resolved]
  - Asthenia [Not Recovered/Not Resolved]
  - Mobility decreased [Not Recovered/Not Resolved]
  - Back pain [Not Recovered/Not Resolved]
  - Musculoskeletal stiffness [Not Recovered/Not Resolved]
  - Gastrointestinal motility disorder [Not Recovered/Not Resolved]

NARRATIVE: CASE EVENT DATE: 20170626
